FAERS Safety Report 15111414 (Version 1)
Quarter: 2018Q3

REPORT INFORMATION
  Report Type: Spontaneous
  Country: US (occurrence: US)
  Receive Date: 20180705
  Receipt Date: 20180705
  Transmission Date: 20181010
  Serious: No
  Sender: FDA-Public Use
  Company Number: US-VIRTUS PHARMACEUTICALS, LLC-2017VTS00635

PATIENT
  Sex: Female

DRUGS (1)
  1. PROGESTERONE. [Suspect]
     Active Substance: PROGESTERONE
     Dosage: UNK
     Dates: end: 2016

REACTIONS (1)
  - Dizziness [Recovered/Resolved]
